FAERS Safety Report 5324881-2 (Version None)
Quarter: 2007Q2

REPORT INFORMATION
  Report Type: 
  Country: None (occurrence: None)
  Receive Date: 20070515
  Receipt Date: 20070510
  Transmission Date: 20071010
  Serious: Yes (Death, Hospitalization, Other)
  Sender: FDA-Public Use
  Company Number: DE-BAYER-200710053BVD

PATIENT
  Age: 83 Year
  Sex: Male
  Weight: 170 kg

DRUGS (8)
  1. AVELOX [Suspect]
     Indication: DIABETIC FOOT INFECTION
     Route: 042
  2. AVELOX [Suspect]
     Route: 048
  3. ASPIRIN [Concomitant]
  4. RAMIPRIL [Concomitant]
     Route: 048
  5. NEBILET [Concomitant]
  6. ALLOPURINOL [Concomitant]
  7. NEXIUM [Concomitant]
     Dosage: AS USED: 40 MG
     Route: 048
     Dates: start: 20060123, end: 20060215
  8. SIMVASTATIN [Concomitant]
     Route: 048
     Dates: start: 19990101

REACTIONS (2)
  - ABSCESS BACTERIAL [None]
  - NECROSIS [None]
